FAERS Safety Report 6204153-4 (Version None)
Quarter: 2009Q2

REPORT INFORMATION
  Report Type: 
  Country: None (occurrence: None)
  Receive Date: 20090527
  Receipt Date: 20090415
  Transmission Date: 20091009
  Serious: No
  Sender: FDA-Public Use
  Company Number: US-BAYER-200919018NA

PATIENT
  Age: 52 Year
  Sex: Female
  Weight: 64 kg

DRUGS (3)
  1. ULTRAVIST 300 [Suspect]
     Indication: COMPUTERISED TOMOGRAM
     Dosage: TOTAL DAILY DOSE: 100 ML  UNIT DOSE: 100 ML
     Route: 042
     Dates: start: 20090415, end: 20090415
  2. BENADRYL [Concomitant]
     Indication: PREMEDICATION
     Dates: start: 20090415, end: 20090415
  3. PREDNISONE [Concomitant]
     Indication: PREMEDICATION
     Dates: start: 20090415, end: 20090415

REACTIONS (1)
  - URTICARIA [None]
